FAERS Safety Report 22373213 (Version 1)
Quarter: 2023Q2

REPORT INFORMATION
  Report Type: Spontaneous
  Country: US (occurrence: US)
  Receive Date: 20230526
  Receipt Date: 20230526
  Transmission Date: 20230721
  Serious: No
  Sender: FDA-Public Use
  Company Number: US-PERRIGO-20US019100

PATIENT
  Age: 56 Year
  Sex: Female
  Weight: 49.887 kg

DRUGS (3)
  1. MINOXIDIL [Suspect]
     Active Substance: MINOXIDIL
     Indication: Hair growth abnormal
     Dosage: A LITTLE LESS THAN 1/2 CAPFUL, QD
     Route: 061
     Dates: start: 201903, end: 201903
  2. MINOXIDIL [Suspect]
     Active Substance: MINOXIDIL
     Dosage: A LITTLE LESS THAN 1/2 CAPFUL, QD
     Route: 061
     Dates: start: 20200210
  3. WELLBUTRIN [Concomitant]
     Active Substance: BUPROPION HYDROCHLORIDE
     Indication: Anxiety
     Dosage: UNK
     Route: 065
     Dates: start: 202001

REACTIONS (1)
  - Incorrect dose administered [Unknown]

NARRATIVE: CASE EVENT DATE: 20190301
